FAERS Safety Report 13412523 (Version 3)
Quarter: 2021Q4

REPORT INFORMATION
  Report Type: Spontaneous
  Country: US (occurrence: US)
  Receive Date: 20170406
  Receipt Date: 20211202
  Transmission Date: 20220303
  Serious: No
  Sender: FDA-Public Use
  Company Number: US-JNJFOC-20170307844

PATIENT
  Sex: Male

DRUGS (9)
  1. RISPERDAL [Suspect]
     Active Substance: RISPERIDONE
     Indication: Bipolar disorder
     Route: 048
     Dates: start: 20031125, end: 20050908
  2. RISPERDAL [Suspect]
     Active Substance: RISPERIDONE
     Indication: Attention deficit hyperactivity disorder
     Route: 048
     Dates: start: 20051006, end: 20070123
  3. RISPERDAL [Suspect]
     Active Substance: RISPERIDONE
     Route: 048
     Dates: start: 20070313, end: 20070710
  4. RISPERDAL [Suspect]
     Active Substance: RISPERIDONE
     Route: 048
     Dates: start: 20080401
  5. RISPERDAL [Suspect]
     Active Substance: RISPERIDONE
     Route: 048
     Dates: start: 20080506, end: 20080714
  6. RISPERDAL [Suspect]
     Active Substance: RISPERIDONE
     Route: 048
     Dates: start: 20080818, end: 20081001
  7. RISPERIDONE [Suspect]
     Active Substance: RISPERIDONE
     Indication: Product used for unknown indication
     Route: 048
     Dates: start: 20031125, end: 20040626
  8. RISPERIDONE [Suspect]
     Active Substance: RISPERIDONE
     Route: 048
     Dates: start: 20040909, end: 20070810
  9. RISPERIDONE [Suspect]
     Active Substance: RISPERIDONE
     Route: 048
     Dates: start: 20080401, end: 20081101

REACTIONS (2)
  - Emotional disorder [Unknown]
  - Gynaecomastia [Unknown]
